FAERS Safety Report 10052201 (Version 1)
Quarter: 2014Q2

REPORT INFORMATION
  Report Type: Spontaneous
  Country: US (occurrence: None)
  Receive Date: 20140401
  Receipt Date: 20140401
  Transmission Date: 20141212
  Serious: Yes (Other)
  Sender: FDA-Public Use
  Company Number: None

PATIENT
  Age: 48 Year
  Sex: Female
  Weight: 75.3 kg

DRUGS (1)
  1. DOXORUBICIN LIPOSOMAL [Suspect]
     Indication: OVARIAN CANCER
     Route: 042
     Dates: start: 20140304

REACTIONS (2)
  - Rash [None]
  - Dry skin [None]
